FAERS Safety Report 11716531 (Version 2)
Quarter: 2015Q4

REPORT INFORMATION
  Report Type: Spontaneous
  Country: CH (occurrence: BE)
  Receive Date: 20151109
  Receipt Date: 20151118
  Transmission Date: 20160304
  Serious: No
  Sender: FDA-Public Use
  Company Number: CH-LPDUSPRD-20150884

PATIENT
  Sex: Female

DRUGS (1)
  1. FERINJECT [Suspect]
     Active Substance: FERRIC CARBOXYMALTOSE
     Dosage: 1000 MG IN 250ML NACL
     Route: 041
     Dates: start: 20151005

REACTIONS (2)
  - Myalgia [Recovered/Resolved]
  - Arthralgia [Recovered/Resolved]

NARRATIVE: CASE EVENT DATE: 20151005
